FAERS Safety Report 5798827-7 (Version None)
Quarter: 2008Q2

REPORT INFORMATION
  Report Type: 
  Country: None (occurrence: None)
  Receive Date: 20080630
  Receipt Date: 20080225
  Transmission Date: 20081010
  Serious: Yes (Hospitalization)
  Sender: FDA-Public Use
  Company Number: 2008-00219FE

PATIENT
  Age: 28 Year
  Sex: Female

DRUGS (4)
  1. MENOTROPHIN [Suspect]
     Indication: ANOVULATORY CYCLE
  2. HUMAN CHORIOANIC GONADOTROPIN()(GONADOTROPIN CHORIONIC) [Suspect]
     Indication: ANOVULATORY CYCLE
  3. CLOMIPHENE ACETATE()(CLOMIPHENE /00061301/) [Suspect]
     Indication: ANOVULATORY CYCLE
  4. ESTROGEN [Concomitant]

REACTIONS (16)
  - ANTIPHOSPHOLIPID SYNDROME [None]
  - BETA-2 GLYCOPROTEIN ANTIBODY POSITIVE [None]
  - BLOOD IMMUNOGLOBULIN G INCREASED [None]
  - BLOOD IMMUNOGLOBULIN M INCREASED [None]
  - CARDIAC MYXOMA [None]
  - COMPLEMENT FACTOR C3 INCREASED [None]
  - COMPLEMENT FACTOR C4 INCREASED [None]
  - COMPLICATION OF PREGNANCY [None]
  - HIRSUTISM [None]
  - INTRACARDIAC THROMBUS [None]
  - MULTIPLE PREGNANCY [None]
  - OBESITY [None]
  - OVARIAN HYPERSTIMULATION SYNDROME [None]
  - PYREXIA [None]
  - RED BLOOD CELL SEDIMENTATION RATE INCREASED [None]
  - TWIN PREGNANCY [None]
